FAERS Safety Report 7368793-1 (Version None)
Quarter: 2011Q1

REPORT INFORMATION
  Report Type: 
  Country: None (occurrence: None)
  Receive Date: 20110323
  Receipt Date: 20110312
  Transmission Date: 20110831
  Serious: Yes (Death, Hospitalization, Other)
  Sender: FDA-Public Use
  Company Number: CO-PAR PHARMACEUTICAL, INC-2011SCPR002774

PATIENT
  Age: 6 Month
  Sex: Male

DRUGS (2)
  1. IBUPROFEN [Suspect]
     Indication: OTITIS MEDIA ACUTE
     Dosage: UNK
     Route: 065
  2. AMOXICILLIN [Concomitant]
     Indication: OTITIS MEDIA ACUTE
     Dosage: UNK
     Route: 065

REACTIONS (13)
  - RESPIRATORY FAILURE [None]
  - ANAEMIA [None]
  - DISSEMINATED INTRAVASCULAR COAGULATION [None]
  - SEPTIC SHOCK [None]
  - THROMBOCYTOPENIA [None]
  - PNEUMONIA [None]
  - ACUTE RESPIRATORY DISTRESS SYNDROME [None]
  - NECROTISING FASCIITIS [None]
  - PSEUDOMONAS INFECTION [None]
  - MULTI-ORGAN FAILURE [None]
  - ILEAL PERFORATION [None]
  - DEATH [None]
  - LEUKOPENIA [None]
